FAERS Safety Report 7232276-X (Version None)
Quarter: 2011Q1

REPORT INFORMATION
  Report Type: 
  Country: None (occurrence: None)
  Receive Date: 20110119
  Receipt Date: 20110110
  Transmission Date: 20110831
  Serious: No
  Sender: FDA-Public Use
  Company Number: US-BIOGENIDEC-2011BI001836

PATIENT
  Age: 34 Year
  Sex: Female

DRUGS (3)
  1. BACLOFEN [Concomitant]
     Indication: GAIT DISTURBANCE
  2. BACLOFEN [Concomitant]
     Indication: BALANCE DISORDER
  3. TYSABRI [Suspect]
     Indication: MULTIPLE SCLEROSIS
     Route: 042
     Dates: start: 20100903

REACTIONS (2)
  - GAIT DISTURBANCE [None]
  - BALANCE DISORDER [None]
